FAERS Safety Report 6110377-7 (Version None)
Quarter: 2009Q1

REPORT INFORMATION
  Report Type: 
  Country: None (occurrence: None)
  Receive Date: 20090310
  Receipt Date: 20090226
  Transmission Date: 20090719
  Serious: Yes (Hospitalization)
  Sender: FDA-Public Use
  Company Number: DE-PFIZER INC-2009167606

PATIENT

DRUGS (8)
  1. AROMASIN [Suspect]
     Indication: BREAST CANCER FEMALE
     Dosage: 25 MG, 1X/DAY
     Route: 048
     Dates: start: 20071101
  2. BLOPRESS [Concomitant]
     Indication: HYPERTENSION
     Dosage: 32 MG, 1X/DAY
  3. METOHEXAL [Concomitant]
     Indication: HYPERTENSION
  4. PANTOZOL [Concomitant]
     Indication: PROPHYLAXIS AGAINST GASTROINTESTINAL ULCER
     Dosage: 40 MG, 1X/DAY
  5. OPTALIDON N [Concomitant]
     Indication: FIBROMYALGIA
     Dosage: UNK
  6. EUTHYROX [Concomitant]
  7. METOPROLOL FUMARATE [Concomitant]
     Dosage: 95 MG, 2X/DAY
     Route: 048
  8. LEVOTHYROXINE SODIUM [Concomitant]
     Dosage: 25 MG, 2X/DAY

REACTIONS (2)
  - CHOLELITHIASIS [None]
  - PANCREATITIS ACUTE [None]
